FAERS Safety Report 7793283-1 (Version None)
Quarter: 2011Q3

REPORT INFORMATION
  Report Type: 
  Country: None (occurrence: None)
  Receive Date: 20110930
  Receipt Date: 20110930
  Transmission Date: 20111222
  Serious: Yes (Other)
  Sender: FDA-Public Use
  Company Number: None

PATIENT
  Sex: Male
  Weight: 122.4712 kg

DRUGS (5)
  1. TRAZODONE HYDROCHLORIDE [Concomitant]
  2. AMBIEN [Concomitant]
  3. SAPHRIS [Suspect]
     Indication: BIPOLAR DISORDER
     Dosage: 5 MG BID PO
     Route: 048
     Dates: start: 20110415, end: 20110722
  4. LISINOPRIL [Concomitant]
  5. CELEBREX [Concomitant]

REACTIONS (1)
  - THROMBOCYTOPENIA [None]
